FAERS Safety Report 23030498 (Version 7)
Quarter: 2025Q2

REPORT INFORMATION
  Report Type: Report from Study
  Country: AU (occurrence: AU)
  Receive Date: 20231005
  Receipt Date: 20250509
  Transmission Date: 20250716
  Serious: Yes (Hospitalization, Other)
  Sender: TAKEDA
  Company Number: AU-TAKEDA-2023TUS048725

PATIENT
  Age: 4 Year
  Sex: Male

DRUGS (7)
  1. TEDUGLUTIDE [Suspect]
     Active Substance: TEDUGLUTIDE
     Indication: Short-bowel syndrome
     Dosage: 0.07 MILLILITER, QD
     Dates: start: 20230503
  2. TEDUGLUTIDE [Suspect]
     Active Substance: TEDUGLUTIDE
     Dosage: 0.95 MILLILITER, QD
  3. TEDUGLUTIDE [Suspect]
     Active Substance: TEDUGLUTIDE
     Dosage: 1 MILLIGRAM, QD
  4. TEDUGLUTIDE [Suspect]
     Active Substance: TEDUGLUTIDE
  5. TRAMADOL [Suspect]
     Active Substance: TRAMADOL
     Indication: Product used for unknown indication
  6. VANCOMYCIN [Suspect]
     Active Substance: VANCOMYCIN
     Indication: Product used for unknown indication
  7. CHLORHEXIDINE [Suspect]
     Active Substance: CHLORHEXIDINE
     Indication: Product used for unknown indication

REACTIONS (16)
  - Gastroenteritis viral [Not Recovered/Not Resolved]
  - Vancomycin infusion reaction [Unknown]
  - Vascular device infection [Recovering/Resolving]
  - Infection [Recovering/Resolving]
  - Systemic candida [Recovering/Resolving]
  - Product contamination microbial [Recovering/Resolving]
  - Urinary tract infection [Recovered/Resolved]
  - Abnormal behaviour [Unknown]
  - Blister [Unknown]
  - Rash [Unknown]
  - Pyrexia [Recovering/Resolving]
  - Lethargy [Recovering/Resolving]
  - Malaise [Unknown]
  - C-reactive protein increased [Recovering/Resolving]
  - Decreased appetite [Recovering/Resolving]
  - Cough [Recovering/Resolving]

NARRATIVE: CASE EVENT DATE: 20230513
